FAERS Safety Report 6975658-3 (Version None)
Quarter: 2010Q3

REPORT INFORMATION
  Report Type: 
  Country: None (occurrence: None)
  Receive Date: 20100910
  Receipt Date: 20090402
  Transmission Date: 20110219
  Serious: No
  Sender: FDA-Public Use
  Company Number: US-WYE-H08827409

PATIENT
  Sex: Female
  Weight: 86.26 kg

DRUGS (4)
  1. PRISTIQ [Suspect]
     Indication: DEPRESSION
     Route: 048
     Dates: start: 20090324
  2. LIPITOR [Concomitant]
  3. CYMBALTA [Suspect]
     Dosage: UNKNOWN
     Dates: end: 20090323
  4. WELLBUTRIN [Concomitant]

REACTIONS (6)
  - ANXIETY [None]
  - DISTURBANCE IN ATTENTION [None]
  - FEELING ABNORMAL [None]
  - HEADACHE [None]
  - HEART RATE INCREASED [None]
  - HYPERHIDROSIS [None]
